FAERS Safety Report 23703895 (Version 1)
Quarter: 2024Q2

REPORT INFORMATION
  Report Type: Spontaneous
  Country: US (occurrence: US)
  Receive Date: 20240403
  Receipt Date: 20240403
  Transmission Date: 20240716
  Serious: Yes (Hospitalization, Other)
  Sender: FDA-Public Use
  Company Number: US-FMCRTG-FMC-2403-000246

PATIENT
  Age: 62 Year
  Sex: Male

DRUGS (18)
  1. DELFLEX WITH DEXTROSE 1.5% LOW MAGNESIUM LOW CALCIUM [Suspect]
     Active Substance: CALCIUM CHLORIDE\DEXTROSE\MAGNESIUM CHLORIDE\SODIUM CHLORIDE\SODIUM LACTATE
     Indication: End stage renal disease
     Dosage: 4 EXCHANGES AND TFV WAS UNKNOWN.
     Route: 033
  2. CARVEDILOL [Concomitant]
     Active Substance: CARVEDILOL
  3. AMLODIPINE [Concomitant]
     Active Substance: AMLODIPINE BESYLATE
  4. ASPIRIN 1000 [Concomitant]
  5. ATORVASTATIN [Concomitant]
     Active Substance: ATORVASTATIN
  6. B COMPLEX 2000 [Concomitant]
  7. CALCITRIOL [Concomitant]
     Active Substance: CALCITRIOL
  8. CHOLECALCIFEROL [Concomitant]
     Active Substance: CHOLECALCIFEROL
  9. FERROUS SULPHATE 325 MG tablet [Concomitant]
  10. FUROSEMIDE [Concomitant]
     Active Substance: FUROSEMIDE
  11. GENTAMICIN [Concomitant]
     Active Substance: GENTAMICIN
  12. INSULIN GLARGINE [Concomitant]
     Active Substance: INSULIN GLARGINE
  13. Lostran [Concomitant]
  14. MIRTAZAPINE [Concomitant]
     Active Substance: MIRTAZAPINE
  15. ONDANSETRON [Concomitant]
     Active Substance: ONDANSETRON
  16. POTASSIUM CHLORIDE [Concomitant]
     Active Substance: POTASSIUM CHLORIDE
  17. RENVELA [Concomitant]
     Active Substance: SEVELAMER CARBONATE
  18. MIRALAX [Concomitant]
     Active Substance: POLYETHYLENE GLYCOL 3350

REACTIONS (2)
  - Peritonitis bacterial [Recovered/Resolved]
  - Fungal peritonitis [Recovering/Resolving]

NARRATIVE: CASE EVENT DATE: 20231204
